FAERS Safety Report 7878782 (Version 5)
Quarter: 2013Q3

REPORT INFORMATION
  Report Type: Report from Study
  Country: DE (occurrence: DE)
  Receive Date: 20110330
  Receipt Date: 20130802
  Transmission Date: 20140515
  Serious: Yes (Hospitalization, Other)
  Sender: FDA-Public Use
  Company Number: PHHO2011DE04945

PATIENT
  Sex: 0

DRUGS (8)
  1. CGS 20267 [Suspect]
     Indication: BREAST CANCER
     Dosage: 2.5 MG, UNK
     Route: 048
     Dates: start: 20070126
  2. DILATREND [Concomitant]
     Indication: HYPERTENSION
  3. FELODIPINE [Concomitant]
     Indication: HYPERTENSION
     Dosage: 10 MG, UNK
  4. LORZAAR PLUS [Concomitant]
     Indication: HYPERTENSION
  5. FUROSEMID [Concomitant]
     Indication: HYPERTENSION
  6. SIMVAHEXAL [Concomitant]
     Indication: HYPERTENSION
     Dosage: 40 MG, UNK
     Dates: end: 20100321
  7. MARCUMAR [Concomitant]
     Indication: THROMBOSIS PROPHYLAXIS
     Dosage: UNK
  8. MEDIABET [Concomitant]
     Indication: DIABETES MELLITUS

REACTIONS (10)
  - Pain in extremity [Unknown]
  - Adams-Stokes syndrome [Unknown]
  - Diabetes mellitus [Unknown]
  - Hypertension [Unknown]
  - Hypertensive crisis [Unknown]
  - Cardiac failure [Recovering/Resolving]
  - Dyspnoea [Recovering/Resolving]
  - Gastroenteritis [Recovered/Resolved]
  - Colitis [Recovered/Resolved]
  - Cardiovascular disorder [Unknown]
